FAERS Safety Report 5320833-7 (Version None)
Quarter: 2007Q2

REPORT INFORMATION
  Report Type: 
  Country: None (occurrence: None)
  Receive Date: 20070502
  Receipt Date: 20070411
  Transmission Date: 20071010
  Serious: Yes (Hospitalization)
  Sender: FDA-Public Use
  Company Number: 1-14695032

PATIENT
  Sex: Female
  Weight: 68 kg

DRUGS (4)
  1. SOTRADECOL [Suspect]
     Indication: SCLEROTHERAPY
     Dosage: 2 ML OF 1% SO;LUTION, INTRAVENOUS
     Route: 042
     Dates: start: 20070302, end: 20070302
  2. COUMADIN [Concomitant]
  3. ACTONEL [Concomitant]
  4. CARDIZEM CD [Concomitant]

REACTIONS (9)
  - ANAPHYLACTIC SHOCK [None]
  - DYSGEUSIA [None]
  - FEELING HOT [None]
  - HEADACHE [None]
  - HYPERSENSITIVITY [None]
  - IMMEDIATE POST-INJECTION REACTION [None]
  - INTERNATIONAL NORMALISED RATIO INCREASED [None]
  - LOSS OF CONSCIOUSNESS [None]
  - OXYGEN SATURATION DECREASED [None]
